FAERS Safety Report 9658404 (Version 2)
Quarter: 2013Q4

REPORT INFORMATION
  Report Type: Spontaneous
  Country: US (occurrence: US)
  Receive Date: 20131030
  Receipt Date: 20131030
  Transmission Date: 20140711
  Serious: No
  Sender: FDA-Public Use
  Company Number: US-PURDUE-USA-2012-0082878

PATIENT
  Age: 57 Year
  Sex: Male

DRUGS (2)
  1. OXYCONTIN (NDA 22-272) [Suspect]
     Indication: NECK PAIN
     Dosage: 20 MG, Q12H
     Route: 048
     Dates: start: 20120213, end: 20120215
  2. IBUPROFEN [Concomitant]
     Indication: NECK PAIN
     Dosage: 2400 MG, BID
     Route: 048
     Dates: start: 201202

REACTIONS (2)
  - Drug ineffective [Recovered/Resolved]
  - Wrong technique in drug usage process [Unknown]
